FAERS Safety Report 9733697 (Version 3)
Quarter: 2015Q2

REPORT INFORMATION
  Report Type: Spontaneous
  Country: US (occurrence: US)
  Receive Date: 20131205
  Receipt Date: 20150630
  Transmission Date: 20150821
  Serious: Yes (Hospitalization, Disabling, Other)
  Sender: FDA-Public Use
  Company Number: US-009507513-1312USA001823

PATIENT
  Sex: Male
  Weight: 100.68 kg

DRUGS (5)
  1. FOSAMAX [Suspect]
     Active Substance: ALENDRONATE SODIUM
     Indication: OSTEOPOROSIS PROPHYLAXIS
     Dosage: 70 MG, UNK
     Route: 048
     Dates: start: 20021015, end: 20070112
  2. FOSAMAX [Suspect]
     Active Substance: ALENDRONATE SODIUM
     Indication: OSTEOPOROSIS
  3. ALENDRONATE SODIUM. [Suspect]
     Active Substance: ALENDRONATE SODIUM
     Indication: OSTEOPOROSIS
  4. ALENDRONATE SODIUM. [Suspect]
     Active Substance: ALENDRONATE SODIUM
     Indication: OSTEOPOROSIS PROPHYLAXIS
     Dosage: 70 MG, UNK
     Route: 048
     Dates: start: 20090311, end: 20100224
  5. FOSAMAX PLUS D [Suspect]
     Active Substance: ALENDRONATE SODIUM\CHOLECALCIFEROL
     Indication: OSTEOPOROSIS
     Dosage: 70 MG, UNK
     Route: 048
     Dates: start: 20070124, end: 20081121

REACTIONS (12)
  - Spinal compression fracture [Unknown]
  - Hypotension [Unknown]
  - Oxygen saturation decreased [Unknown]
  - Femur fracture [Unknown]
  - Impaired healing [Unknown]
  - Thoracic vertebral fracture [Unknown]
  - Osteoporosis [Not Recovered/Not Resolved]
  - Dyspnoea [Unknown]
  - Low turnover osteopathy [Not Recovered/Not Resolved]
  - Chest pain [Unknown]
  - Deafness [Not Recovered/Not Resolved]
  - Osteopetrosis [Unknown]

NARRATIVE: CASE EVENT DATE: 2002
